FAERS Safety Report 9547071 (Version 1)
Quarter: 2013Q2

REPORT INFORMATION
  Report Type: Spontaneous
  Country: US (occurrence: None)
  Receive Date: 20130606
  Receipt Date: 20130606
  Transmission Date: 20140414
  Serious: Yes (Other)
  Sender: FDA-Public Use
  Company Number: 163-POMAL-13031609

PATIENT
  Age: 77 Year
  Sex: Male

DRUGS (13)
  1. POMALYST [Suspect]
     Indication: PLASMA CELL MYELOMA
     Route: 048
     Dates: start: 20130221
  2. ATORVASTATIN CALCIUM (ATORVASTATIN CALCIUM) [Concomitant]
  3. CLOPIDOGREL BISULFATE (CLOPIDOGREL SULFATE) [Concomitant]
  4. LOSARTAN POTASSIUM (LOSARTAN POTASSIUM) [Concomitant]
  5. METOPROLOL SUCCINATE ER (METOPROLOL SUCCINATE) [Concomitant]
  6. ACYCLOVIR (ACICLOVIR) [Concomitant]
  7. BAYER ASPIRIN EC LOW DOSE (ACETYLSALICYLIC ACID) [Concomitant]
  8. CLOTRIMAZOLE AF (CLOTRIMAZOLE) [Concomitant]
  9. CYCLOBENZAPRINE HCL (CYCLOBENZAPRINE HYDROCHLORIDE) [Concomitant]
  10. DEXAMETHASONE (DEXAMETHASONE) [Concomitant]
  11. DULCOLAX (BISACODYL) [Concomitant]
  12. FOLIC ACID (FOLIC ACID) [Concomitant]
  13. LACTOBACILLUS EXTRA STRENGTH (LACTOBACILLUS ACIDOPHILUS) [Concomitant]

REACTIONS (1)
  - Diarrhoea [None]
